FAERS Safety Report 7594103-0 (Version None)
Quarter: 2011Q3

REPORT INFORMATION
  Report Type: 
  Country: None (occurrence: None)
  Receive Date: 20110706
  Receipt Date: 20110630
  Transmission Date: 20111222
  Serious: Yes (Death, Life-Threatening, Other)
  Sender: FDA-Public Use
  Company Number: JP-CEPHALON-2011001627

PATIENT
  Age: 76 Year
  Sex: Male
  Weight: 57 kg

DRUGS (15)
  1. LENOGRASTIM [Concomitant]
     Dates: start: 20110214, end: 20110327
  2. FAMOTIDINE [Concomitant]
  3. MEROPENEM [Concomitant]
     Dates: start: 20110317, end: 20110322
  4. TEPRENONE [Concomitant]
  5. VALACYCLOVIR HYDROCHLORIDE [Concomitant]
     Dates: start: 20110119
  6. BENDAMUSTINE HCL [Suspect]
     Indication: B-CELL LYMPHOMA
     Route: 042
     Dates: start: 20110119, end: 20110120
  7. BENDAMUSTINE HCL [Suspect]
     Route: 042
     Dates: start: 20110222, end: 20110223
  8. CEFEPIME HYDROCHLORIDE [Concomitant]
     Dates: start: 20110101, end: 20110316
  9. DEXAMETHASONE [Concomitant]
     Dates: start: 20110119, end: 20110223
  10. BETAMETHASONE [Suspect]
     Indication: B-CELL LYMPHOMA
     Dates: start: 20110119, end: 20110328
  11. ZOLPIDEM [Concomitant]
  12. GRANISETRON HCL [Concomitant]
     Dates: start: 20110119, end: 20110223
  13. MAGNESIUM OXIDE [Concomitant]
  14. AMPHOTERICIN B [Concomitant]
     Dates: start: 20101001
  15. SULFAMETHOXAZOLE AND TRIMETHOPRIM [Concomitant]
     Dates: start: 20101001, end: 20110301

REACTIONS (17)
  - SEPSIS [None]
  - BLOOD CREATININE INCREASED [None]
  - PLATELET COUNT DECREASED [None]
  - LYMPHOCYTE COUNT DECREASED [None]
  - TREMOR [None]
  - NEUTROPHIL COUNT DECREASED [None]
  - HYPERKALAEMIA [None]
  - RED BLOOD CELL COUNT DECREASED [None]
  - HAEMOGLOBIN DECREASED [None]
  - HAEMATOCRIT DECREASED [None]
  - NEOPLASM PROGRESSION [None]
  - CEREBRAL HAEMORRHAGE [None]
  - RENAL IMPAIRMENT [None]
  - CARDIO-RESPIRATORY ARREST [None]
  - BONE MARROW FAILURE [None]
  - DEHYDRATION [None]
  - B-CELL SMALL LYMPHOCYTIC LYMPHOMA [None]
